FAERS Safety Report 14017060 (Version 3)
Quarter: 2018Q2

REPORT INFORMATION
  Report Type: Spontaneous
  Country: JP (occurrence: JP)
  Receive Date: 20170927
  Receipt Date: 20180625
  Transmission Date: 20180711
  Serious: Yes (Death, Other)
  Sender: FDA-Public Use
  Company Number: JP-BAYER-2017-180410

PATIENT
  Age: 75 Year
  Sex: Male
  Weight: 56 kg

DRUGS (3)
  1. OFEV [Interacting]
     Active Substance: NINTEDANIB
  2. BAYASPIRIN 100 MG [Suspect]
     Active Substance: ASPIRIN
     Indication: CAROTID ARTERY THROMBOSIS
     Dosage: DAILY DOSE 100 MG
     Route: 048
  3. THROMBOMODULIN ALFA [Interacting]
     Active Substance: THROMBOMODULIN ALFA

REACTIONS (6)
  - Pulmonary alveolar haemorrhage [Fatal]
  - Labelled drug-drug interaction medication error [None]
  - Respiratory tract haemorrhage [Fatal]
  - Respiratory failure [Fatal]
  - Interstitial lung disease [Fatal]
  - Drug administration error [None]
